FAERS Safety Report 17782838 (Version 2)
Quarter: 2020Q2

REPORT INFORMATION
  Report Type: Report from Study
  Country: GB (occurrence: GB)
  Receive Date: 20200513
  Receipt Date: 20200520
  Transmission Date: 20200714
  Serious: Yes (Hospitalization)
  Sender: FDA-Public Use
  Company Number: GB-SAMSUNG BIOEPIS-SB-2020-08637

PATIENT
  Age: 85 Year
  Sex: Female

DRUGS (1)
  1. IMRALDI [Suspect]
     Active Substance: ADALIMUMAB
     Indication: RHEUMATOID ARTHRITIS
     Route: 058
     Dates: start: 20200219

REACTIONS (11)
  - Groin pain [Not Recovered/Not Resolved]
  - Pain in extremity [Not Recovered/Not Resolved]
  - COVID-19 [Recovered/Resolved]
  - Arthralgia [Not Recovered/Not Resolved]
  - Asthenia [Unknown]
  - Cardiac disorder [Recovering/Resolving]
  - Exposure to SARS-CoV-2 [Recovered/Resolved]
  - Oedema peripheral [Recovering/Resolving]
  - Pain of skin [Recovering/Resolving]
  - Thrombosis [Recovering/Resolving]
  - Gait disturbance [Not Recovered/Not Resolved]
